FAERS Safety Report 21086797 (Version 2)
Quarter: 2022Q3

REPORT INFORMATION
  Report Type: Spontaneous
  Country: MA (occurrence: MA)
  Receive Date: 20220715
  Receipt Date: 20220826
  Transmission Date: 20221027
  Serious: No
  Sender: FDA-Public Use
  Company Number: MA-PFIZER INC-PV202200011332

PATIENT
  Age: 14 Year
  Sex: Female

DRUGS (1)
  1. GENOTROPIN [Suspect]
     Active Substance: SOMATROPIN
     Dosage: 1.5 UNK, DAILY(1.5 / EVERYDAY)
     Route: 058
     Dates: start: 20220121

REACTIONS (1)
  - Device leakage [Recovered/Resolved]
